FAERS Safety Report 7049031-6 (Version None)
Quarter: 2010Q4

REPORT INFORMATION
  Report Type: 
  Country: None (occurrence: None)
  Receive Date: 20101018
  Receipt Date: 20101011
  Transmission Date: 20110411
  Serious: Yes (Other)
  Sender: FDA-Public Use
  Company Number: PHHO2010US15515

PATIENT
  Sex: Female
  Weight: 72 kg

DRUGS (3)
  1. ZOLEDRONATE T29581+SOLINF [Suspect]
     Indication: BREAST CANCER
     Dosage: 4 MG, UNK
     Route: 042
     Dates: start: 20080829
  2. CALCIUM [Concomitant]
     Indication: BREAST CANCER
     Dosage: UNK
     Dates: start: 20080829
  3. VITAMIN D [Concomitant]
     Indication: BREAST CANCER
     Dosage: UNK
     Dates: start: 20080829

REACTIONS (3)
  - HEADACHE [None]
  - INSOMNIA [None]
  - MYALGIA [None]
